FAERS Safety Report 17037564 (Version 2)
Quarter: 2019Q4

REPORT INFORMATION
  Report Type: Report from Study
  Country: IE (occurrence: IE)
  Receive Date: 20191115
  Receipt Date: 20191212
  Transmission Date: 20200122
  Serious: Yes (Other)
  Sender: FDA-Public Use
  Company Number: IE-ASTRAZENECA-2019SF62421

PATIENT
  Age: 1 Year
  Sex: Female

DRUGS (4)
  1. OXYBUTYNIN. [Concomitant]
     Active Substance: OXYBUTYNIN CHLORIDE
     Indication: PRODUCT USED FOR UNKNOWN INDICATION
     Route: 050
  2. GALFER [Concomitant]
     Active Substance: IRON
     Indication: PRODUCT USED FOR UNKNOWN INDICATION
     Route: 050
  3. SYNAGIS [Suspect]
     Active Substance: PALIVIZUMAB
     Indication: LUNG DISORDER
     Dosage: 15 MG/KG MONTHLY ON 19-JAN-2019, ON 18-FEB-2019, ON 08-OCT-2019, ON 06-NOV-2019 AND 04-DEC-2019
     Route: 030
     Dates: start: 20190119
  4. SYNAGIS [Suspect]
     Active Substance: PALIVIZUMAB
     Indication: SPINA BIFIDA
     Dosage: 15 MG/KG MONTHLY ON 19-JAN-2019, ON 18-FEB-2019, ON 08-OCT-2019, ON 06-NOV-2019 AND 04-DEC-2019
     Route: 030
     Dates: start: 20190119

REACTIONS (6)
  - Product use in unapproved indication [Unknown]
  - Infection [Not Recovered/Not Resolved]
  - Nephrolithiasis [Recovered/Resolved]
  - Impaired healing [Not Recovered/Not Resolved]
  - Weight gain poor [Not Recovered/Not Resolved]
  - Kidney infection [Not Recovered/Not Resolved]

NARRATIVE: CASE EVENT DATE: 2019
